FAERS Safety Report 6594293-2 (Version None)
Quarter: 2010Q1

REPORT INFORMATION
  Report Type: 
  Country: None (occurrence: None)
  Receive Date: 20100222
  Receipt Date: 20100218
  Transmission Date: 20100710
  Serious: Yes (Hospitalization)
  Sender: FDA-Public Use
  Company Number: US-MERCK-0912USA03783

PATIENT
  Age: 57 Year
  Sex: Female

DRUGS (13)
  1. SINGULAIR [Suspect]
     Route: 048
  2. ALBUTEROL [Concomitant]
     Route: 065
  3. ALPRAZOLAM [Concomitant]
     Route: 065
  4. CALCIUM (UNSPECIFIED) [Concomitant]
     Route: 065
  5. VITAMIN D (UNSPECIFIED) [Concomitant]
     Route: 065
  6. DEXAMETHASONE [Concomitant]
     Route: 048
  7. DILTIAZEM HYDROCHLORIDE [Concomitant]
     Route: 065
  8. TYLENOL PM [Concomitant]
     Route: 065
  9. PEPCID [Concomitant]
     Route: 048
  10. KEPPRA [Concomitant]
     Route: 065
  11. SYNTHROID [Concomitant]
     Route: 065
  12. PROTONIX [Concomitant]
     Route: 065
  13. ZOLOFT [Concomitant]
     Route: 065

REACTIONS (2)
  - MASS [None]
  - WRONG TECHNIQUE IN DRUG USAGE PROCESS [None]
